FAERS Safety Report 12376043 (Version 2)
Quarter: 2016Q2

REPORT INFORMATION
  Report Type: Spontaneous
  Country: JP (occurrence: JP)
  Receive Date: 20160517
  Receipt Date: 20160525
  Transmission Date: 20160815
  Serious: Yes (Other)
  Sender: FDA-Public Use
  Company Number: JP-PFIZER INC-2016252110

PATIENT
  Age: 93 Year

DRUGS (1)
  1. UNASYN [Suspect]
     Active Substance: AMPICILLIN SODIUM\SULBACTAM SODIUM
     Dosage: UNK
     Route: 041

REACTIONS (11)
  - Vomiting [Unknown]
  - Somnolence [Unknown]
  - Altered state of consciousness [Unknown]
  - Hallucination [Unknown]
  - Malaise [Unknown]
  - Eczema [Unknown]
  - Thirst [Unknown]
  - Therapeutic response decreased [Unknown]
  - White blood cell count decreased [Unknown]
  - C-reactive protein increased [Unknown]
  - Decreased appetite [Unknown]
